FAERS Safety Report 8947687 (Version 1)
Quarter: 2012Q4

REPORT INFORMATION
  Report Type: 
  Country: US (occurrence: US)
  Receive Date: 20121205
  Receipt Date: 20121205
  Transmission Date: 20130627
  Serious: Yes (Other)
  Sender: FDA-Public Use
  Company Number: PHHY2012US110426

PATIENT
  Age: 64 Year
  Sex: Male

DRUGS (2)
  1. CLINDAMYCIN [Suspect]
     Indication: INFECTION PROPHYLAXIS
     Dosage: 900 mg, Q6H
     Route: 042
  2. CLINDAMYCIN [Suspect]
     Dosage: 900 mg, Q8H
     Route: 042

REACTIONS (5)
  - Anaemia [Unknown]
  - Wound dehiscence [Unknown]
  - Wound infection [Unknown]
  - White blood cell count decreased [Unknown]
  - Neutropenia [Recovered/Resolved]
